FAERS Safety Report 5625643-9 (Version None)
Quarter: 2008Q1

REPORT INFORMATION
  Report Type: 
  Country: None (occurrence: None)
  Receive Date: 20080207
  Receipt Date: 20080207
  Transmission Date: 20080703
  Serious: Yes (Other)
  Sender: FDA-Public Use
  Company Number: None

PATIENT
  Sex: Male
  Weight: 64.4108 kg

DRUGS (2)
  1. CREST PRO-HEALTH CLEAN MINT PROCTOR+GAMBLE [Suspect]
     Dosage: REGULAR AMOUNT ONCE A DAY DENTAL
     Route: 004
     Dates: start: 20080105, end: 20080203
  2. CREST PRO-HEALTH CLEAN NIGHT MINT PROCTOR+GAMBLE [Suspect]
     Dosage: REGULAR AMOUNT ONCE A DAY DENTAL
     Route: 004
     Dates: start: 20071217, end: 20080203

REACTIONS (3)
  - PHARMACEUTICAL PRODUCT COMPLAINT [None]
  - SKIN EXFOLIATION [None]
  - SKIN IRRITATION [None]
